FAERS Safety Report 6188738-X (Version None)
Quarter: 2009Q2

REPORT INFORMATION
  Report Type: 
  Country: None (occurrence: None)
  Receive Date: 20090511
  Receipt Date: 20090511
  Transmission Date: 20091009
  Serious: No
  Sender: FDA-Public Use
  Company Number: None

PATIENT
  Sex: Female
  Weight: 49.8957 kg

DRUGS (1)
  1. XELODA [Suspect]
     Indication: BREAST CANCER METASTATIC
     Dosage: 1500 MG 2X A DAY
     Dates: start: 20081007, end: 20090310

REACTIONS (9)
  - BALANCE DISORDER [None]
  - BLINDNESS [None]
  - GAIT DISTURBANCE [None]
  - INCREASED UPPER AIRWAY SECRETION [None]
  - MOVEMENT DISORDER [None]
  - PAIN IN EXTREMITY [None]
  - VISUAL IMPAIRMENT [None]
  - VOMITING [None]
  - VOMITING PROJECTILE [None]
